FAERS Safety Report 13177590 (Version 1)
Quarter: 2017Q1

REPORT INFORMATION
  Report Type: Report from Study
  Country: US (occurrence: US)
  Receive Date: 20170201
  Receipt Date: 20170201
  Transmission Date: 20170428
  Serious: No
  Sender: FDA-Public Use
  Company Number: US-EXELIXIS-CABO-16006592

PATIENT
  Sex: Male

DRUGS (1)
  1. CABOMETYX [Suspect]
     Active Substance: CABOZANTINIB S-MALATE
     Indication: METASTASES TO LYMPH NODES
     Dosage: 60 MG, QD
     Route: 048
     Dates: start: 20160602, end: 201606

REACTIONS (6)
  - Pain [Not Recovered/Not Resolved]
  - Rash [Recovered/Resolved]
  - Blister [Recovering/Resolving]
  - Dental cleaning [Unknown]
  - Dry skin [Unknown]
  - Off label use [Unknown]
